FAERS Safety Report 24824596 (Version 1)
Quarter: 2025Q1

REPORT INFORMATION
  Report Type: Spontaneous
  Country: CN (occurrence: CN)
  Receive Date: 20250109
  Receipt Date: 20250109
  Transmission Date: 20250409
  Serious: Yes (Hospitalization, Other)
  Sender: HISUN PHARMACEUTICALS USA INC
  Company Number: CN-Hisun Pharmaceuticals USA Inc.-000152

PATIENT
  Age: 53 Year
  Sex: Female
  Weight: 66 kg

DRUGS (2)
  1. DACTINOMYCIN [Suspect]
     Active Substance: DACTINOMYCIN
     Indication: Endometrial cancer
     Route: 042
     Dates: start: 20241120, end: 20241127
  2. FLUOROURACIL [Suspect]
     Active Substance: FLUOROURACIL
     Indication: Endometrial cancer
     Route: 042
     Dates: start: 20241120, end: 20241127

REACTIONS (5)
  - Agranulocytosis [Recovering/Resolving]
  - Hyperpyrexia [Unknown]
  - Mouth ulceration [Recovered/Resolved]
  - White blood cell count decreased [Recovering/Resolving]
  - Product use in unapproved indication [Unknown]

NARRATIVE: CASE EVENT DATE: 20241120
